FAERS Safety Report 17515790 (Version 1)
Quarter: 2020Q1

REPORT INFORMATION
  Report Type: Spontaneous
  Country: US (occurrence: US)
  Receive Date: 20200227
  Receipt Date: 20200227
  Transmission Date: 20200409
  Serious: Yes (Hospitalization)
  Sender: FDA-Public Use
  Company Number: None

PATIENT
  Sex: Male

DRUGS (1)
  1. ZORTRESS [Suspect]
     Active Substance: EVEROLIMUS
     Indication: COMPLICATIONS OF TRANSPLANTED HEART
     Dosage: ?          OTHER DOSE:4 TABS;?
     Route: 048
     Dates: start: 20200130

REACTIONS (1)
  - Hospitalisation [None]
